FAERS Safety Report 6898519-7 (Version None)
Quarter: 2010Q3

REPORT INFORMATION
  Report Type: 
  Country: None (occurrence: None)
  Receive Date: 20100802
  Receipt Date: 20071022
  Transmission Date: 20110219
  Serious: No
  Sender: FDA-Public Use
  Company Number: US-PFIZER INC-2007090193

PATIENT
  Sex: Female

DRUGS (4)
  1. LYRICA [Suspect]
  2. CLONAZEPAM [Suspect]
  3. ANALGESICS [Concomitant]
     Indication: PAIN
  4. ALPRAZOLAM [Concomitant]
     Indication: ANXIETY

REACTIONS (3)
  - FOOD CRAVING [None]
  - INSOMNIA [None]
  - WEIGHT INCREASED [None]
